FAERS Safety Report 23451761 (Version 1)
Quarter: 2024Q1

REPORT INFORMATION
  Report Type: Spontaneous
  Country: US (occurrence: None)
  Receive Date: 20240126
  Receipt Date: 20240126
  Transmission Date: 20240410
  Serious: Yes (Death, Hospitalization)
  Sender: FDA-Public Use
  Company Number: None

PATIENT
  Age: 61 Year
  Sex: Female
  Weight: 68.04 kg

DRUGS (12)
  1. KEYTRUDA [Suspect]
     Active Substance: PEMBROLIZUMAB
     Indication: Triple negative breast cancer
     Dosage: OTHER FREQUENCY : EVERY 6 WEEKS;?
     Dates: start: 202209, end: 202308
  2. KEYTRUDA [Suspect]
     Active Substance: PEMBROLIZUMAB
     Indication: Radioimmunotherapy
  3. CARVEDILOL [Concomitant]
     Active Substance: CARVEDILOL
  4. TELMISARTAN [Concomitant]
     Active Substance: TELMISARTAN
  5. MAXZIDE [Concomitant]
     Active Substance: HYDROCHLOROTHIAZIDE\TRIAMTERENE
  6. LIPITOR [Concomitant]
     Active Substance: ATORVASTATIN CALCIUM
  7. ZOLOFT [Concomitant]
     Active Substance: SERTRALINE HYDROCHLORIDE
  8. POTASSIUM [Concomitant]
     Active Substance: POTASSIUM
  9. FLONASE [Concomitant]
     Active Substance: FLUTICASONE PROPIONATE
  10. ZYRTEC [Concomitant]
     Active Substance: CETIRIZINE HYDROCHLORIDE
  11. PREVACID [Concomitant]
     Active Substance: LANSOPRAZOLE
  12. Women^s Multivitamin [Concomitant]

REACTIONS (8)
  - Pneumonitis [None]
  - Pleural effusion [None]
  - Metastases to bone [None]
  - Rhinovirus infection [None]
  - Septic shock [None]
  - Respiratory failure [None]
  - Pneumonia [None]
  - Toxicity to various agents [None]

NARRATIVE: CASE EVENT DATE: 20231121
